FAERS Safety Report 7368019-9 (Version None)
Quarter: 2011Q1

REPORT INFORMATION
  Report Type: 
  Country: None (occurrence: None)
  Receive Date: 20110323
  Receipt Date: 20110317
  Transmission Date: 20110831
  Serious: Yes (Other)
  Sender: FDA-Public Use
  Company Number: US-BAYER-2011-024627

PATIENT

DRUGS (1)
  1. ULTRAVIST 150 [Suspect]
     Indication: COMPUTERISED TOMOGRAM
     Dosage: UNK
     Dates: start: 20100429, end: 20100429

REACTIONS (4)
  - JOINT SWELLING [None]
  - CHEST PAIN [None]
  - PYREXIA [None]
  - RASH ERYTHEMATOUS [None]
